FAERS Safety Report 4279712-9 (Version None)
Quarter: 2004Q1

REPORT INFORMATION
  Report Type: 
  Country: None (occurrence: None)
  Receive Date: 20040123
  Receipt Date: 20040120
  Transmission Date: 20041129
  Serious: Yes (Other)
  Sender: FDA-Public Use
  Company Number: STA-AE-04-MTX-018

PATIENT
  Age: 71 Year
  Sex: Male

DRUGS (6)
  1. RHEUMATREX [Suspect]
     Indication: RHEUMATOID ARTHRITIS
     Dosage: 2 MG 1X PER 1 DAY, ORAL
     Route: 048
     Dates: start: 20030617, end: 20030617
  2. PREDNISOLONE [Concomitant]
  3. ETODOLAC [Concomitant]
  4. BAYASPIRINA (ACETYLSALICYLIC ACID) [Concomitant]
  5. WARFARIN SODIUM [Concomitant]
  6. FAMOTIDINE [Concomitant]

REACTIONS (3)
  - ANAPHYLACTIC SHOCK [None]
  - CHILLS [None]
  - PYREXIA [None]
